FAERS Safety Report 4946609-8 (Version None)
Quarter: 2006Q1

REPORT INFORMATION
  Report Type: 
  Country: None (occurrence: None)
  Receive Date: 20060317
  Receipt Date: 20060310
  Transmission Date: 20060701
  Serious: Yes (Other)
  Sender: FDA-Public Use
  Company Number: 2006/00347

PATIENT
  Sex: Female

DRUGS (6)
  1. IMIGRAN [Suspect]
     Indication: MIGRAINE
     Dosage: 100MG PER DAY
  2. CIPRAMIL [Suspect]
  3. ZYBAN [Suspect]
  4. ZANTAC [Concomitant]
  5. ABBOTICIN [Concomitant]
  6. TRICYCLICS [Concomitant]

REACTIONS (5)
  - DRUG INEFFECTIVE [None]
  - GASTRIC DISORDER [None]
  - LOSS OF CONSCIOUSNESS [None]
  - MIGRAINE [None]
  - NAUSEA [None]
